FAERS Safety Report 17976282 (Version 4)
Quarter: 2020Q3

REPORT INFORMATION
  Report Type: Spontaneous
  Country: DE (occurrence: DE)
  Receive Date: 20200703
  Receipt Date: 20200924
  Transmission Date: 20201103
  Serious: Yes (Other)
  Sender: FDA-Public Use
  Company Number: DE-AUROBINDO-AUR-APL-2020-031782

PATIENT
  Age: 81 Year
  Sex: Male

DRUGS (1)
  1. ALFUZOSIN AUROBINDO 10MG PROLONGED?RELEASE TABLETS 10MG [Suspect]
     Active Substance: ALFUZOSIN HYDROCHLORIDE
     Indication: PRODUCT USED FOR UNKNOWN INDICATION
     Dosage: UNK
     Route: 065

REACTIONS (4)
  - Product quality issue [Unknown]
  - Product substitution issue [Unknown]
  - Product use complaint [Unknown]
  - Foreign body in throat [Recovered/Resolved]
